FAERS Safety Report 19035031 (Version 1)
Quarter: 2021Q1

REPORT INFORMATION
  Report Type: Other
  Country: US (occurrence: US)
  Receive Date: 20210320
  Receipt Date: 20210320
  Transmission Date: 20210420
  Serious: Yes (Other)
  Sender: FDA-Public Use
  Company Number: US-ACORDA-ACO_167362_2020

PATIENT
  Sex: Female

DRUGS (1)
  1. INBRIJA [Suspect]
     Active Substance: LEVODOPA
     Indication: PARKINSON^S DISEASE
     Dosage: 42 MILLIGRAM, NOT TO EXCEED 5 DOSES PER DAY
     Route: 065
     Dates: start: 20201020

REACTIONS (2)
  - Prescribed underdose [Unknown]
  - Spinal stenosis [Unknown]
